FAERS Safety Report 24017745 (Version 1)
Quarter: 2024Q2

REPORT INFORMATION
  Report Type: Spontaneous
  Country: FR (occurrence: FR)
  Receive Date: 20240627
  Receipt Date: 20240627
  Transmission Date: 20240716
  Serious: Yes (Hospitalization, Other)
  Sender: FDA-Public Use
  Company Number: None

PATIENT
  Age: 73 Year
  Sex: Female
  Weight: 76 kg

DRUGS (13)
  1. ORENCIA [Suspect]
     Active Substance: ABATACEPT
     Indication: Rheumatoid arthritis
     Dates: start: 201612, end: 201707
  2. ORENCIA [Suspect]
     Active Substance: ABATACEPT
     Dates: start: 201805, end: 202004
  3. TOCILIZUMAB [Suspect]
     Active Substance: TOCILIZUMAB
     Indication: Rheumatoid arthritis
     Dates: start: 201501, end: 201612
  4. ENBREL [Suspect]
     Active Substance: BENZYL ALCOHOL\ETANERCEPT
     Indication: Rheumatoid arthritis
     Dates: start: 201405, end: 201501
  5. XELJANZ [Suspect]
     Active Substance: TOFACITINIB CITRATE
     Indication: Rheumatoid arthritis
     Dates: start: 202004, end: 20240317
  6. METHOTREXATE [Suspect]
     Active Substance: METHOTREXATE
     Indication: Rheumatoid arthritis
     Dates: start: 201307, end: 201405
  7. METHOTREXATE [Suspect]
     Active Substance: METHOTREXATE
     Dates: start: 201805, end: 201809
  8. METHOTREXATE [Suspect]
     Active Substance: METHOTREXATE
     Dates: start: 201405, end: 201805
  9. METHOTREXATE [Suspect]
     Active Substance: METHOTREXATE
     Dates: start: 201809
  10. FOLIC ACID [Concomitant]
     Active Substance: FOLIC ACID
     Indication: Product used for unknown indication
  11. INFLIXIMAB [Concomitant]
     Active Substance: INFLIXIMAB
     Indication: Rheumatoid arthritis
     Dates: start: 20240318
  12. ISONIAZID\RIFAMPIN [Concomitant]
     Active Substance: ISONIAZID\RIFAMPIN
     Indication: Product used for unknown indication
     Dates: start: 2014, end: 2014
  13. CALCIUM\CHOLECALCIFEROL [Concomitant]
     Active Substance: CALCIUM\CHOLECALCIFEROL
     Indication: Product used for unknown indication

REACTIONS (1)
  - Lung adenocarcinoma [Not Recovered/Not Resolved]

NARRATIVE: CASE EVENT DATE: 20231201
